FAERS Safety Report 4978918-0 (Version None)
Quarter: 2006Q2

REPORT INFORMATION
  Report Type: 
  Country: None (occurrence: None)
  Receive Date: 20060417
  Receipt Date: 20060404
  Transmission Date: 20061013
  Serious: Yes (Other)
  Sender: FDA-Public Use
  Company Number: 2006047408

PATIENT
  Age: 74 Year
  Sex: Female

DRUGS (8)
  1. PREDNISOLONE [Suspect]
     Indication: CATARACT OPERATION
  2. LIGNOCAINE (LIGNOCAINE) [Suspect]
     Indication: ILL-DEFINED DISORDER
  3. BUPIVACAINE [Suspect]
     Indication: ILL-DEFINED DISORDER
     Dosage: 0.02 ML (0.02 ML, SINGLE DOSE)
  4. HYALURONIDASE [Suspect]
     Indication: ILL-DEFINED DISORDER
     Dosage: SINGLE DOSE
  5. PROXYMETACAINE (PROXYMETACAINE) [Suspect]
     Indication: ILL-DEFINED DISORDER
     Dosage: OPHTHALMIC
     Route: 047
  6. POVIDONE IODINE [Suspect]
     Indication: ILL-DEFINED DISORDER
  7. CEFUROXIME [Concomitant]
  8. CHLORAMPHENICOL [Concomitant]

REACTIONS (9)
  - BODY TEMPERATURE DECREASED [None]
  - CONJUNCTIVAL OEDEMA [None]
  - DISORDER OF ORBIT [None]
  - EXOPHTHALMOS [None]
  - EYE PAIN [None]
  - INTRAOCULAR PRESSURE INCREASED [None]
  - MASS [None]
  - PAROPHTHALMIA [None]
  - POST PROCEDURAL COMPLICATION [None]
